FAERS Safety Report 6192459-7 (Version None)
Quarter: 2009Q2

REPORT INFORMATION
  Report Type: 
  Country: None (occurrence: None)
  Receive Date: 20090518
  Receipt Date: 20090506
  Transmission Date: 20091009
  Serious: Yes (Hospitalization)
  Sender: FDA-Public Use
  Company Number: AT-JNJFOC-20090405749

PATIENT
  Sex: Female
  Weight: 87 kg

DRUGS (7)
  1. REMICADE [Suspect]
     Indication: CROHN'S DISEASE
     Dosage: ESTIMATION OF 10 ML ABSORBED
     Route: 042
  2. HUMIRA [Suspect]
     Indication: CROHN'S DISEASE
  3. CAL-D-VITA [Concomitant]
     Indication: CROHN'S DISEASE
     Dosage: DOSE: 1-0-1
  4. TRITTICO [Concomitant]
     Indication: PANIC DISORDER
     Dosage: DOSE: 0-1/2-2/3
  5. SEROQUEL [Concomitant]
     Indication: PANIC DISORDER
     Dosage: DOSE: 1-0-1
  6. PAROXAT [Concomitant]
     Indication: PANIC DISORDER
  7. NEUROBION [Concomitant]

REACTIONS (3)
  - ABSCESS [None]
  - ARTHRITIS ENTEROPATHIC [None]
  - PROCTALGIA [None]
